FAERS Safety Report 17770837 (Version 1)
Quarter: 2020Q2

REPORT INFORMATION
  Report Type: Spontaneous
  Country: US (occurrence: US)
  Receive Date: 20200512
  Receipt Date: 20200512
  Transmission Date: 20200714
  Serious: No
  Sender: FDA-Public Use
  Company Number: US-SA-2020SA121448

PATIENT
  Age: 35 Year
  Sex: Female

DRUGS (1)
  1. LOVENOX [Suspect]
     Active Substance: ENOXAPARIN SODIUM
     Indication: PROTEIN C DEFICIENCY
     Dosage: 40 MG, BID
     Route: 065

REACTIONS (1)
  - Needle issue [Unknown]
